FAERS Safety Report 7098334-8 (Version None)
Quarter: 2010Q4

REPORT INFORMATION
  Report Type: 
  Country: None (occurrence: None)
  Receive Date: 20101104
  Receipt Date: 20101022
  Transmission Date: 20110411
  Serious: Yes (Hospitalization)
  Sender: FDA-Public Use
  Company Number: 7021255

PATIENT
  Age: 81 Year
  Sex: Female

DRUGS (13)
  1. LEVOTHYROXINE SODIUM [Suspect]
     Indication: PRODUCT USED FOR UNKNOWN INDICATION
     Dosage: 1 DF (1 DF, 1 IN 1 D) ORAL
     Route: 048
     Dates: end: 20100713
  2. PAROXETINE HYDROCHLORIDE [Suspect]
     Indication: DEPRESSION
     Dosage: (1 DF) ORAL
     Route: 048
     Dates: start: 20100501, end: 20100713
  3. ATARAX [Suspect]
     Indication: PRODUCT USED FOR UNKNOWN INDICATION
     Dosage: 1 DF (1 DF, 1 IN 1 D) ORAL
     Route: 048
     Dates: end: 20100713
  4. ARICEPT [Suspect]
     Indication: DEMENTIA ALZHEIMER'S TYPE
     Dosage: 1 DF (1 DF, 1 IN 1 D) ORAL
     Route: 048
     Dates: start: 20050101, end: 20100713
  5. DIGOXIN [Suspect]
     Indication: PRODUCT USED FOR UNKNOWN INDICATION
     Dosage: 1 DF (1 DF, 1 IN 1 D) ORAL
     Route: 048
     Dates: end: 20100715
  6. ZOLPIDEM [Suspect]
     Indication: PRODUCT USED FOR UNKNOWN INDICATION
     Dosage: 1 DF (1 DF, 1 IN 1 D) ORAL
     Route: 048
     Dates: end: 20100713
  7. XATRAL (ALFUZOSIN) (ALFUZOSIN) [Concomitant]
  8. LASILIX FAIBLE (FUROSEMIDE) (20 MG, TABLET) (FUROSEMIDE) [Concomitant]
  9. CANDESARTAN CILEXETIL (UNKNOWN) (CANDESARTAN CILEXETIL) (CANDESARTAN C [Concomitant]
  10. KARDEGIC (ACETYLSALICYLATE LYSINE) (160 MG, POWDER FOR ORAL SOLUTION) [Concomitant]
  11. URAPIDIL (URAPIDIL) (URAPIDIL) [Concomitant]
  12. SPASFON (SPASFON /00765801/) (PHLOROGLUCINOL) [Concomitant]
  13. INOFER (FERROUS SUCCINATE) (FERROUS SUCCINATE, SUCCINIC ACID) [Concomitant]

REACTIONS (6)
  - DEHYDRATION [None]
  - HYPERKALAEMIA [None]
  - HYPERTONIA [None]
  - SOMNOLENCE [None]
  - TREMOR [None]
  - URINARY RETENTION [None]
